FAERS Safety Report 8916123 (Version 1)
Quarter: 2012Q4

REPORT INFORMATION
  Report Type: 
  Country: ZA (occurrence: ZA)
  Receive Date: 20121120
  Receipt Date: 20121120
  Transmission Date: 20130627
  Serious: Yes (Hospitalization)
  Sender: FDA-Public Use
  Company Number: ZA-ELI_LILLY_AND_COMPANY-ZA201211004455

PATIENT
  Sex: Female

DRUGS (3)
  1. HUMALOG 25% LISPRO, 75% NPL [Suspect]
     Indication: TYPE 2 DIABETES MELLITUS
     Dosage: 40 u, each morning
     Route: 058
     Dates: start: 201206
  2. HUMALOG 25% LISPRO, 75% NPL [Suspect]
     Dosage: 20 u, each evening
     Route: 058
     Dates: start: 201206
  3. METFORMIN [Concomitant]
     Indication: TYPE 2 DIABETES MELLITUS
     Dosage: 850 mg, bid
     Route: 048

REACTIONS (1)
  - Renal disorder [Unknown]
